FAERS Safety Report 6354780-9 (Version None)
Quarter: 2009Q3

REPORT INFORMATION
  Report Type: 
  Country: None (occurrence: None)
  Receive Date: 20090914
  Receipt Date: 20090902
  Transmission Date: 20100115
  Serious: Yes (Hospitalization)
  Sender: FDA-Public Use
  Company Number: US-PFIZER INC-2009262867

PATIENT
  Sex: Female

DRUGS (6)
  1. EXEMESTANE [Suspect]
     Indication: BREAST CANCER
     Dosage: 25 MG, 1X/DAY
     Route: 048
     Dates: start: 20080411
  2. TOPROL-XL [Concomitant]
     Dosage: UNK
     Route: 048
     Dates: start: 20041101
  3. SIMVASTATIN [Concomitant]
     Dosage: UNK
     Route: 048
  4. ACETYLSALICYLIC ACID [Concomitant]
     Dosage: UNK
     Route: 048
  5. MULTI-VITAMINS [Concomitant]
     Dosage: UNK
     Route: 048
  6. FISH OIL [Concomitant]
     Dosage: UNK
     Route: 048

REACTIONS (1)
  - TRANSIENT ISCHAEMIC ATTACK [None]
